FAERS Safety Report 17983971 (Version 1)
Quarter: 2020Q3

REPORT INFORMATION
  Report Type: Spontaneous
  Country: US (occurrence: US)
  Receive Date: 20200706
  Receipt Date: 20200706
  Transmission Date: 20201103
  Serious: Yes (Other)
  Sender: FDA-Public Use
  Company Number: None

PATIENT
  Age: 81 Year
  Sex: Female

DRUGS (3)
  1. CELESTONE [Suspect]
     Active Substance: BETAMETHASONE
  2. MARCAINE [Suspect]
     Active Substance: BUPIVACAINE HYDROCHLORIDE
  3. LIDOCAINE. [Suspect]
     Active Substance: LIDOCAINE

REACTIONS (2)
  - Dizziness [None]
  - Dysarthria [None]

NARRATIVE: CASE EVENT DATE: 20200611
